FAERS Safety Report 8478489 (Version 3)
Quarter: 2012Q4

REPORT INFORMATION
  Report Type: 
  Country: RU (occurrence: RU)
  Receive Date: 20120327
  Receipt Date: 20121016
  Transmission Date: 20130627
  Serious: Yes (Death, Disabling, Other)
  Sender: FDA-Public Use
  Company Number: RU-GLAXOSMITHKLINE-B0791142A

PATIENT
  Age: 9 Year
  Sex: Male

DRUGS (2)
  1. ATRIANCE [Suspect]
     Indication: T-CELL LYMPHOMA
     Route: 042
     Dates: start: 2012, end: 2012
  2. CYTARABINE [Concomitant]
     Indication: LEUKAEMIA

REACTIONS (10)
  - Death [Fatal]
  - Neuropathy peripheral [Not Recovered/Not Resolved]
  - Areflexia [Not Recovered/Not Resolved]
  - Upper motor neurone lesion [Not Recovered/Not Resolved]
  - Abasia [Not Recovered/Not Resolved]
  - Dysstasia [Not Recovered/Not Resolved]
  - Movement disorder [Not Recovered/Not Resolved]
  - Sensory loss [Not Recovered/Not Resolved]
  - Peripheral motor neuropathy [Not Recovered/Not Resolved]
  - Paraparesis [Not Recovered/Not Resolved]
